FAERS Safety Report 4741595-8 (Version None)
Quarter: 2005Q3

REPORT INFORMATION
  Report Type: 
  Country: None (occurrence: None)
  Receive Date: 20050801
  Receipt Date: 20050627
  Transmission Date: 20060218
  Serious: No
  Sender: FDA-Public Use
  Company Number: 2005PV000167

PATIENT
  Age: 50 Year
  Sex: Female
  Weight: 110.2241 kg

DRUGS (8)
  1. BYETTA [Suspect]
     Indication: DIABETES MELLITUS NON-INSULIN-DEPENDENT
     Dosage: 5 UG;BID;SC
     Route: 058
     Dates: start: 20050621, end: 20050705
  2. BYETTA [Suspect]
     Indication: DIABETES MELLITUS NON-INSULIN-DEPENDENT
     Dosage: 5 UG;BID;SC
     Route: 058
     Dates: start: 20050712
  3. ACTOS [Concomitant]
  4. NOVOLIN 70/30 [Concomitant]
  5. HUMULIN 70/30 [Concomitant]
  6. COUMADIN [Concomitant]
  7. TENORMIN [Concomitant]
  8. MARDICA [Concomitant]

REACTIONS (2)
  - ARTHROPOD BITE [None]
  - RASH PRURITIC [None]
